FAERS Safety Report 9007578 (Version 1)
Quarter: 2013Q1

REPORT INFORMATION
  Report Type: Spontaneous
  Country: US (occurrence: US)
  Receive Date: 20130111
  Receipt Date: 20130111
  Transmission Date: 20140127
  Serious: Yes (Other)
  Sender: FDA-Public Use
  Company Number: US-009507513-0911USA00627

PATIENT
  Age: 6 Year
  Sex: Male
  Weight: 20 kg

DRUGS (3)
  1. SINGULAIR [Suspect]
     Indication: ASTHMA
     Dosage: 5 MG, QPM
     Route: 048
     Dates: start: 20090109, end: 20090116
  2. ALBUTEROL [Concomitant]
  3. PREDNISOLONE [Concomitant]

REACTIONS (4)
  - Abnormal behaviour [Recovered/Resolved]
  - Burning sensation [Recovered/Resolved]
  - Crying [Recovered/Resolved]
  - Pruritus [Recovered/Resolved]
